FAERS Safety Report 7232370-3 (Version None)
Quarter: 2011Q1

REPORT INFORMATION
  Report Type: 
  Country: None (occurrence: None)
  Receive Date: 20110119
  Receipt Date: 20110112
  Transmission Date: 20110831
  Serious: Yes (Hospitalization)
  Sender: FDA-Public Use
  Company Number: DE-JNJFOC-20110102801

PATIENT
  Age: 64 Year
  Sex: Female

DRUGS (8)
  1. ONDANSETRON [Concomitant]
     Route: 065
  2. DEXAMETHASONE [Concomitant]
     Route: 065
  3. CEFUROXIME [Concomitant]
     Indication: URINARY TRACT INFECTION
     Route: 065
  4. PREGABALIN [Concomitant]
     Indication: PAIN
     Route: 065
  5. METOCLOPRAMIDE HYDROCHLORIDE [Concomitant]
     Route: 065
  6. TAVANIC [Suspect]
     Indication: URINARY TRACT INFECTION
     Route: 042
  7. ANTINEOPLASTIC AGENTS [Concomitant]
     Route: 065
  8. PREGABALIN [Concomitant]
     Indication: NEUROPATHY PERIPHERAL
     Route: 065

REACTIONS (4)
  - HYPERSENSITIVITY [None]
  - THROAT IRRITATION [None]
  - FLUSHING [None]
  - OEDEMA MOUTH [None]
